FAERS Safety Report 18288626 (Version 1)
Quarter: 2020Q3

REPORT INFORMATION
  Report Type: Spontaneous
  Country: US (occurrence: US)
  Receive Date: 20200919
  Receipt Date: 20200919
  Transmission Date: 20201103
  Serious: Yes (Other)
  Sender: FDA-Public Use
  Company Number: None

PATIENT
  Age: 27 Year
  Sex: Male
  Weight: 75.24 kg

DRUGS (3)
  1. METHYLPHENIDATE ER TABLET (GENERIC FOR CONCERTA) [Suspect]
     Active Substance: METHYLPHENIDATE HYDROCHLORIDE
     Route: 048
     Dates: start: 20200903, end: 20200919
  2. GABAPENTIN 300 MG [Concomitant]
     Active Substance: GABAPENTIN
     Dates: start: 20200502
  3. ESCITALOPRAM [Concomitant]
     Active Substance: ESCITALOPRAM OXALATE
     Dates: start: 20191206

REACTIONS (6)
  - Therapeutic response decreased [None]
  - Disturbance in attention [None]
  - Product substitution issue [None]
  - Anxiety [None]
  - Drug delivery system issue [None]
  - Product supply issue [None]

NARRATIVE: CASE EVENT DATE: 20200903
